FAERS Safety Report 18122912 (Version 1)
Quarter: 2020Q3

REPORT INFORMATION
  Report Type: Spontaneous
  Country: AU (occurrence: AU)
  Receive Date: 20200807
  Receipt Date: 20200807
  Transmission Date: 20201103
  Serious: Yes (Other)
  Sender: FDA-Public Use
  Company Number: AU-ACCORD-194378

PATIENT
  Age: 69 Year
  Sex: Male

DRUGS (3)
  1. TACROLIMUS. [Suspect]
     Active Substance: TACROLIMUS
     Indication: IMMUNOSUPPRESSANT DRUG THERAPY
  2. PREDNISOLONE. [Suspect]
     Active Substance: PREDNISOLONE
     Indication: IMMUNOSUPPRESSANT DRUG THERAPY
  3. MYCOPHENOLIC ACID. [Suspect]
     Active Substance: MYCOPHENOLIC ACID
     Indication: IMMUNOSUPPRESSANT DRUG THERAPY

REACTIONS (10)
  - Respiratory tract infection [Recovered/Resolved]
  - Aspergillus infection [Recovered/Resolved]
  - Hypogammaglobulinaemia [Recovered/Resolved]
  - Pseudomonas infection [Recovered/Resolved]
  - Enterobacter infection [Recovered/Resolved]
  - Atypical mycobacterial infection [Recovered/Resolved]
  - Adenovirus infection [Recovered/Resolved]
  - Alveolar proteinosis [Recovered/Resolved]
  - Oxidative stress [Recovered/Resolved]
  - Human polyomavirus infection [Recovered/Resolved]
